FAERS Safety Report 7821960-2 (Version None)
Quarter: 2011Q4

REPORT INFORMATION
  Report Type: 
  Country: None (occurrence: None)
  Receive Date: 20111018
  Receipt Date: 20101005
  Transmission Date: 20120403
  Serious: No
  Sender: FDA-Public Use
  Company Number: US-ASTRAZENECA-2010SE44857

PATIENT
  Age: 64 Year
  Sex: Female
  Weight: 86.2 kg

DRUGS (4)
  1. SYMBICORT [Suspect]
     Indication: SARCOIDOSIS
     Dosage: DAILY DOSE 160/4.5 MCG, TWICE DAILY
     Route: 055
     Dates: start: 20090801
  2. PREVACID [Concomitant]
  3. ZOCOR [Concomitant]
  4. ZOLOFT [Concomitant]

REACTIONS (2)
  - DYSPNOEA [None]
  - WHEEZING [None]
